FAERS Safety Report 7728258-1 (Version None)
Quarter: 2011Q3

REPORT INFORMATION
  Report Type: 
  Country: None (occurrence: None)
  Receive Date: 20110905
  Receipt Date: 20110829
  Transmission Date: 20111222
  Serious: Yes (Death)
  Sender: FDA-Public Use
  Company Number: PHHY2011IT77835

PATIENT
  Age: 70 Year

DRUGS (7)
  1. CYCLOSPORINE [Suspect]
     Indication: RENAL TRANSPLANT
     Dosage: 225 MG, UNK
  2. RAPAMUNE [Concomitant]
     Dosage: 2 MG, UNK
  3. MYCOPHENOLATE MOFETIL [Concomitant]
     Dosage: 1000 MG, UNK
  4. PREDNISONE [Concomitant]
     Dosage: 5 MG, UNK
  5. PREDNISONE [Concomitant]
     Dosage: 15 MG, UNK
  6. CYCLOSPORINE [Suspect]
     Dosage: 125 MG, UNK
  7. MYCOPHENOLATE MOFETIL [Concomitant]
     Dosage: 1500 MG, UNK

REACTIONS (3)
  - OEDEMA [None]
  - BLADDER TRANSITIONAL CELL CARCINOMA STAGE I [None]
  - NEOPLASM PROGRESSION [None]
